FAERS Safety Report 9812465 (Version 1)
Quarter: 2014Q1

REPORT INFORMATION
  Report Type: Spontaneous
  Country: US (occurrence: US)
  Receive Date: 20140113
  Receipt Date: 20140113
  Transmission Date: 20141002
  Serious: No
  Sender: FDA-Public Use
  Company Number: US-BIOGENIDEC-2014BI003162

PATIENT
  Sex: Female

DRUGS (1)
  1. TYSABRI [Suspect]
     Indication: MULTIPLE SCLEROSIS
     Route: 042
     Dates: start: 20121212

REACTIONS (7)
  - Fear [Unknown]
  - Learning disorder [Unknown]
  - Frustration [Unknown]
  - Reading disorder [Unknown]
  - Cognitive disorder [Unknown]
  - Emotional disorder [Unknown]
  - Multiple sclerosis relapse [Unknown]
